FAERS Safety Report 19755151 (Version 1)
Quarter: 2021Q3

REPORT INFORMATION
  Report Type: Spontaneous
  Country: US (occurrence: US)
  Receive Date: 20210827
  Receipt Date: 20210827
  Transmission Date: 20211014
  Serious: Yes (Other)
  Sender: FDA-Public Use
  Company Number: US-ACCORD-236449

PATIENT
  Age: 69 Year
  Sex: Female
  Weight: 55.79 kg

DRUGS (1)
  1. SPIRONOLACTONE ACCORD [Suspect]
     Active Substance: SPIRONOLACTONE
     Indication: PRODUCT USED FOR UNKNOWN INDICATION
     Dosage: STRENGTH: 25MG

REACTIONS (6)
  - Vomiting [Unknown]
  - Product storage error [Unknown]
  - Product taste abnormal [Unknown]
  - Product odour abnormal [Unknown]
  - Retching [Unknown]
  - Choking [Recovered/Resolved]
